FAERS Safety Report 17135591 (Version 1)
Quarter: 2019Q4

REPORT INFORMATION
  Report Type: Spontaneous
  Country: FR (occurrence: FR)
  Receive Date: 20191210
  Receipt Date: 20191210
  Transmission Date: 20200122
  Serious: Yes (Hospitalization)
  Sender: FDA-Public Use
  Company Number: FR-MYLANLABS-2019M1120562

PATIENT
  Age: 93 Year
  Sex: Female
  Weight: 46.5 kg

DRUGS (5)
  1. TIAPRIDE [Suspect]
     Active Substance: TIAPRIDE
     Indication: BEHAVIOUR DISORDER
     Dosage: 50 MG MATIN ET MIDI-100 MG LE SOIR
     Route: 048
  2. INDAPAMIDE. [Suspect]
     Active Substance: INDAPAMIDE
     Indication: HYPERTENSION
     Dosage: 1.5 MILLIGRAM, QD
     Route: 048
  3. RISPERIDONE. [Suspect]
     Active Substance: RISPERIDONE
     Indication: BEHAVIOUR DISORDER
     Dosage: 0.5 MG LE MATIN ET LE MIDI - 1 MG LE SOIR
     Route: 048
     Dates: start: 201808, end: 20181009
  4. LOXEN L P [Suspect]
     Active Substance: NICARDIPINE HYDROCHLORIDE
     Indication: HYPERTENSION
     Dosage: 2 DOSAGE FORM, QD
     Route: 048
  5. LEVOTHYROX [Suspect]
     Active Substance: LEVOTHYROXINE
     Indication: AUTOIMMUNE THYROIDITIS
     Dosage: 1 DOSAGE FORM, QD
     Route: 048

REACTIONS (1)
  - Fall [Recovered/Resolved]

NARRATIVE: CASE EVENT DATE: 20181015
